FAERS Safety Report 7720584-5 (Version None)
Quarter: 2011Q3

REPORT INFORMATION
  Report Type: 
  Country: None (occurrence: None)
  Receive Date: 20110831
  Receipt Date: 20110823
  Transmission Date: 20111222
  Serious: Yes (Hospitalization)
  Sender: FDA-Public Use
  Company Number: PHHY2011US29584

PATIENT
  Sex: Male
  Weight: 84.354 kg

DRUGS (16)
  1. LASIX [Concomitant]
     Dosage: 20 MG, UNK
     Dates: start: 20100211
  2. GUAIFENESIN [Concomitant]
     Dosage: 100 MG/ 5ML, UNK
     Dates: start: 20100211
  3. MAGNESIUM [Concomitant]
  4. METOCLOPRAMIDE [Concomitant]
  5. METOPROLOL TARTRATE [Concomitant]
     Dosage: 50 MG, UNK
     Dates: start: 20100211
  6. AMIODARONE HCL [Concomitant]
     Dosage: 200 MG, UNK
  7. COUMADIN [Concomitant]
     Dosage: 1 MG, UNK
     Dates: start: 20101102
  8. TOPRAL [Concomitant]
  9. ALLOPURINOL [Concomitant]
     Dosage: 100 MG, UNK
     Dates: start: 20110211
  10. HYDREA [Concomitant]
     Dosage: 500 MG, UNK
  11. EXJADE [Suspect]
     Indication: IRON METABOLISM DISORDER
     Dosage: 1500 MG, QD
     Route: 048
     Dates: start: 20100210, end: 20110815
  12. EXJADE [Suspect]
     Indication: IRON OVERLOAD
  13. CALCITRIOL [Concomitant]
     Dosage: 0.25 UG, UNK
  14. FOLIC ACID [Concomitant]
     Dosage: 1 MG, UNK
  15. COLCHICINE [Concomitant]
     Dosage: 0.6 MG, UNK
     Dates: start: 20110202
  16. MUCINEX [Concomitant]
     Dosage: 600 MG, UNK
     Dates: start: 20101102

REACTIONS (2)
  - RENAL IMPAIRMENT [None]
  - HYPERMAGNESAEMIA [None]
